FAERS Safety Report 24281321 (Version 1)
Quarter: 2024Q3

REPORT INFORMATION
  Report Type: Spontaneous
  Country: US (occurrence: None)
  Receive Date: 20240830
  Receipt Date: 20240830
  Transmission Date: 20241017
  Serious: No
  Sender: Public
  Company Number: None

PATIENT

DRUGS (1)
  1. INSULIN HUMAN [Suspect]
     Active Substance: INSULIN HUMAN

REACTIONS (7)
  - Rhinorrhoea [None]
  - Cough [None]
  - Nasal obstruction [None]
  - Sneezing [None]
  - Product prescribing issue [None]
  - Incorrect dose administered [None]
  - Overdose [None]
